FAERS Safety Report 24154802 (Version 2)
Quarter: 2024Q3

REPORT INFORMATION
  Report Type: Spontaneous
  Country: JP (occurrence: JP)
  Receive Date: 20240731
  Receipt Date: 20240914
  Transmission Date: 20241016
  Serious: Yes (Death)
  Sender: ROCHE
  Company Number: JP-CHUGAI-2024025179AA

PATIENT
  Age: 56 Year
  Sex: Male

DRUGS (2)
  1. AVASTIN [Suspect]
     Active Substance: BEVACIZUMAB
     Indication: Hepatocellular carcinoma
     Dosage: UNK
     Route: 042
  2. TECENTRIQ [Suspect]
     Active Substance: ATEZOLIZUMAB
     Indication: Hepatocellular carcinoma
     Dosage: UNK
     Route: 042

REACTIONS (2)
  - Tumour haemorrhage [Fatal]
  - Pyrexia [Unknown]

NARRATIVE: CASE EVENT DATE: 20240707
